FAERS Safety Report 5751947-5 (Version None)
Quarter: 2008Q2

REPORT INFORMATION
  Report Type: 
  Country: None (occurrence: None)
  Receive Date: 20080529
  Receipt Date: 20080428
  Transmission Date: 20081010
  Serious: No
  Sender: FDA-Public Use
  Company Number: US-BAYER-200821348NA

PATIENT
  Age: 39 Year
  Sex: Female
  Weight: 92 kg

DRUGS (2)
  1. MIRENA [Suspect]
     Indication: CONTRACEPTION
     Route: 015
     Dates: start: 20070701
  2. ALBUTEROL [Concomitant]
     Indication: ASTHMA
     Route: 048

REACTIONS (1)
  - PREGNANCY WITH CONTRACEPTIVE DEVICE [None]
